FAERS Safety Report 14967153 (Version 1)
Quarter: 2018Q2

REPORT INFORMATION
  Report Type: Spontaneous
  Country: IN (occurrence: IN)
  Receive Date: 20180604
  Receipt Date: 20180604
  Transmission Date: 20180711
  Serious: Yes (Life-Threatening)
  Sender: FDA-Public Use
  Company Number: IN-CHEPLA-C20170281

PATIENT
  Age: 34 Year
  Sex: Female

DRUGS (7)
  1. ARSENIC TRIOXIDE (ATO) [Suspect]
     Active Substance: ARSENIC TRIOXIDE
     Indication: ACUTE PROMYELOCYTIC LEUKAEMIA
     Dosage: CONSOLIDATION THERAPY WITH ATO (0.15 MG/KG A DAY)
  2. ARSENIC TRIOXIDE (ATO) [Suspect]
     Active Substance: ARSENIC TRIOXIDE
     Indication: ACUTE PROMYELOCYTIC LEUKAEMIA
  3. IDARABUCIN [Suspect]
     Active Substance: IDARUBICIN
     Indication: ACUTE PROMYELOCYTIC LEUKAEMIA
  4. ALL-TRANS RETINOIC ACID (ATRA) [Suspect]
     Active Substance: TRETINOIN
     Indication: ACUTE PROMYELOCYTIC LEUKAEMIA
     Dosage: DRUG WITHDRAWN AFTER 11 DAYS OF THERAPY
  5. ARSENIC TRIOXIDE (ATO) [Suspect]
     Active Substance: ARSENIC TRIOXIDE
     Indication: ACUTE PROMYELOCYTIC LEUKAEMIA
     Dosage: MAINTENANCE THERAPY WITH ATO 0.15 MG/KG A DAY FOR 10 DAYS EVERY MONTH
  6. ALL-TRANS RETINOIC ACID (ATRA) [Suspect]
     Active Substance: TRETINOIN
     Indication: ACUTE PROMYELOCYTIC LEUKAEMIA
     Dosage: CONSOLIDATION THERAPY WITH 4 CYCLES (EACH 25 DAYS) OF ATRA (45 MG/MM2 A DAY)
  7. METFORMIN [Concomitant]
     Active Substance: METFORMIN HYDROCHLORIDE
     Indication: DIABETES MELLITUS

REACTIONS (3)
  - Diabetes mellitus [None]
  - Familial periodic paralysis [Recovered/Resolved]
  - Acute promyelocytic leukaemia differentiation syndrome [Recovered/Resolved]
